FAERS Safety Report 14812729 (Version 1)
Quarter: 2018Q2

REPORT INFORMATION
  Report Type: Spontaneous
  Country: CA (occurrence: CA)
  Receive Date: 20180426
  Receipt Date: 20180426
  Transmission Date: 20180711
  Serious: Yes (Other)
  Sender: FDA-Public Use
  Company Number: CA-BAXTER-2018BAX012138

PATIENT
  Age: 65 Year
  Sex: Female

DRUGS (4)
  1. 800 SODIUM BICARBONATE POWDER [Suspect]
     Active Substance: SODIUM BICARBONATE
     Indication: PRODUCT USED FOR UNKNOWN INDICATION
     Route: 065
  2. HIGHLY CONCENTRATED POTASSIUM CHLORIDE 400MEQ/L [Suspect]
     Active Substance: POTASSIUM CHLORIDE
     Indication: PRODUCT USED FOR UNKNOWN INDICATION
     Route: 065
  3. LORAZEPAM. [Concomitant]
     Active Substance: LORAZEPAM
     Indication: AGITATION
     Route: 065
  4. 5% DEXTROSE INJECTION [Suspect]
     Active Substance: DEXTROSE
     Indication: ELECTROCARDIOGRAM QRS COMPLEX PROLONGED
     Route: 065

REACTIONS (1)
  - Electrocardiogram QRS complex prolonged [Recovered/Resolved]
